FAERS Safety Report 17230815 (Version 2)
Quarter: 2025Q2

REPORT INFORMATION
  Report Type: Spontaneous
  Country: NL (occurrence: NL)
  Receive Date: 20200103
  Receipt Date: 20250605
  Transmission Date: 20250716
  Serious: Yes (Other)
  Sender: MYLAN
  Company Number: NL-UCBSA-2019018270

PATIENT

DRUGS (1)
  1. LEVETIRACETAM [Suspect]
     Active Substance: LEVETIRACETAM
     Indication: Seizure

REACTIONS (5)
  - Suicidal ideation [Unknown]
  - Psychotic behaviour [Unknown]
  - Behaviour disorder [Unknown]
  - Rash [Unknown]
  - Drug ineffective [Unknown]
